FAERS Safety Report 7874539-0 (Version None)
Quarter: 2011Q4

REPORT INFORMATION
  Report Type: 
  Country: None (occurrence: None)
  Receive Date: 20111030
  Receipt Date: 20111024
  Transmission Date: 20120403
  Serious: Yes (Other)
  Sender: FDA-Public Use
  Company Number: US-SANOFI-AVENTIS-2011SA070412

PATIENT
  Sex: Female
  Weight: 58 kg

DRUGS (14)
  1. CALCIUM/MAGNESIUM [Concomitant]
  2. LISINOPRIL [Concomitant]
  3. BENICAR [Concomitant]
     Dates: start: 20100101
  4. PLAVIX [Suspect]
     Indication: THROMBOSIS PROPHYLAXIS
  5. ZANTAC [Concomitant]
  6. XANAX [Concomitant]
     Dates: start: 20100608
  7. CATAPRES /UNK/ [Concomitant]
     Route: 062
  8. ZANTAC [Concomitant]
  9. ZANTAC [Concomitant]
  10. CELEXA [Suspect]
  11. ASPIRIN [Concomitant]
  12. ZANTAC [Concomitant]
  13. NORVASC [Concomitant]
     Route: 048
     Dates: start: 20100101
  14. METOPROLOL [Concomitant]
     Dates: start: 20100101

REACTIONS (2)
  - OESOPHAGEAL DISORDER [None]
  - HYPERTENSION [None]
